FAERS Safety Report 23999254 (Version 1)
Quarter: 2024Q2

REPORT INFORMATION
  Report Type: Spontaneous
  Country: US (occurrence: US)
  Receive Date: 20240621
  Receipt Date: 20240621
  Transmission Date: 20240715
  Serious: No
  Sender: FDA-Public Use
  Company Number: US-HIKMA PHARMACEUTICALS USA INC.-US-H14001-24-00457

PATIENT
  Age: 75 Year
  Sex: Female
  Weight: 56.69 kg

DRUGS (2)
  1. FLUTICASONE PROPIONATE [Suspect]
     Active Substance: FLUTICASONE PROPIONATE
     Dosage: UNK, SINGLE
     Route: 047
     Dates: start: 20240110, end: 20240110
  2. FLUTICASONE PROPIONATE [Suspect]
     Active Substance: FLUTICASONE PROPIONATE
     Indication: Rhinorrhoea
     Dosage: ONE SPRAY (50 MCG) IN EACH NOSTRIL, ONCE DAILY AS NEEDED
     Route: 045
     Dates: end: 20240110

REACTIONS (4)
  - Ocular hyperaemia [Not Recovered/Not Resolved]
  - Accidental exposure to product [Unknown]
  - Incorrect dose administered [Recovered/Resolved]
  - Exposure via eye contact [Unknown]

NARRATIVE: CASE EVENT DATE: 20240110
